FAERS Safety Report 5645520-7 (Version None)
Quarter: 2008Q1

REPORT INFORMATION
  Report Type: 
  Country: None (occurrence: None)
  Receive Date: 20080229
  Receipt Date: 20080225
  Transmission Date: 20080703
  Serious: Yes (Life-Threatening)
  Sender: FDA-Public Use
  Company Number: JP-ASTRAZENECA-2008AP00635

PATIENT
  Age: 76 Year
  Sex: Female
  Weight: 45 kg

DRUGS (4)
  1. CRESTOR [Suspect]
     Indication: HYPERCHOLESTEROLAEMIA
     Route: 048
     Dates: start: 20071024, end: 20071222
  2. ADETPHOS [Suspect]
     Indication: SKELETON DYSPLASIA
     Route: 048
     Dates: start: 20071129, end: 20071222
  3. RIZABEN [Suspect]
     Indication: SKELETON DYSPLASIA
     Route: 048
     Dates: start: 20071129, end: 20071222
  4. DASEN [Suspect]
     Indication: SKELETON DYSPLASIA
     Route: 048
     Dates: start: 20071129, end: 20071222

REACTIONS (1)
  - HEPATIC FUNCTION ABNORMAL [None]
